FAERS Safety Report 24587682 (Version 2)
Quarter: 2024Q4

REPORT INFORMATION
  Report Type: Spontaneous
  Country: JP (occurrence: JP)
  Receive Date: 20241107
  Receipt Date: 20241205
  Transmission Date: 20250115
  Serious: Yes (Other)
  Sender: NOVARTIS
  Company Number: JP-002147023-NVSJ2024JP012900

PATIENT
  Sex: Female

DRUGS (1)
  1. BEOVU [Suspect]
     Active Substance: BROLUCIZUMAB-DBLL
     Indication: Diabetic retinal oedema
     Dosage: 6 MG, RIGHT EYE
     Route: 031

REACTIONS (6)
  - Retinal perivascular sheathing [Recovering/Resolving]
  - Cystoid macular oedema [Not Recovered/Not Resolved]
  - Vitreous opacities [Recovering/Resolving]
  - Eye pain [Recovered/Resolved]
  - Diabetic retinal oedema [Unknown]
  - Disease progression [Unknown]
